FAERS Safety Report 4279869-X (Version None)
Quarter: 2004Q1

REPORT INFORMATION
  Report Type: 
  Country: None (occurrence: None)
  Receive Date: 20040126
  Receipt Date: 20040114
  Transmission Date: 20041129
  Serious: Yes (Hospitalization)
  Sender: FDA-Public Use
  Company Number: IL-JNJFOC-20040102696

PATIENT
  Age: 32 Year
  Sex: Female

DRUGS (6)
  1. INFLIXIMAB, RECOMBINANT - BLINDED (INFLIXIMAB, RECOMBINANT), LYOPHILIZ [Suspect]
     Indication: COLITIS ULCERATIVE
     Dosage: INTRAVENOUS
     Route: 042
  2. PLACEBO (PLACEBO) LYOPHILIZED POWDER [Suspect]
     Indication: COLITIS ULCERATIVE
     Dosage: INTRAVENOUS
     Route: 042
  3. PENBRITIN (AMPICILLIN) [Concomitant]
  4. FLAGYL [Concomitant]
  5. GARAMYCIN [Concomitant]
  6. CIPROFLOXACIN [Concomitant]

REACTIONS (2)
  - COLITIS [None]
  - CONDITION AGGRAVATED [None]
